FAERS Safety Report 8016902-3 (Version None)
Quarter: 2012Q1

REPORT INFORMATION
  Report Type: 
  Country: None (occurrence: None)
  Receive Date: 20120102
  Receipt Date: 20111220
  Transmission Date: 20120608
  Serious: Yes (Hospitalization, Other)
  Sender: FDA-Public Use
  Company Number: PHHY2010CA70592

PATIENT
  Sex: Male

DRUGS (7)
  1. PANTOPRAZOLE SODIUM [Concomitant]
  2. SANDOSTATIN LAR [Suspect]
     Dosage: 30 MG, EVERY 4 WEEKS
     Route: 030
  3. HYDROMORPHONE HCL [Concomitant]
  4. LACTULOSE [Concomitant]
  5. COLACE [Concomitant]
  6. SANDOSTATIN LAR [Suspect]
     Indication: NEUROENDOCRINE TUMOUR
     Dosage: 30 MG, QMO
     Route: 030
     Dates: start: 20100902
  7. AVODART [Concomitant]

REACTIONS (7)
  - INJECTION SITE HAEMORRHAGE [None]
  - NEEDLE ISSUE [None]
  - FATIGUE [None]
  - DISCOMFORT [None]
  - ACUTE MYOCARDIAL INFARCTION [None]
  - BLOOD PRESSURE SYSTOLIC INCREASED [None]
  - HEART RATE IRREGULAR [None]
